FAERS Safety Report 13786015 (Version 4)
Quarter: 2018Q1

REPORT INFORMATION
  Report Type: Spontaneous
  Country: US (occurrence: US)
  Receive Date: 20170725
  Receipt Date: 20180205
  Transmission Date: 20180508
  Serious: No
  Sender: FDA-Public Use
  Company Number: US-LUNDBECK-DKLU2033901

PATIENT
  Age: 39 Year
  Sex: Female

DRUGS (5)
  1. NORTHERA [Suspect]
     Active Substance: DROXIDOPA
     Route: 048
  2. NORTHERA [Suspect]
     Active Substance: DROXIDOPA
     Dosage: SCHEDULE B; COMPLETED
     Route: 048
  3. NORTHERA [Suspect]
     Active Substance: DROXIDOPA
     Route: 048
  4. NORTHERA [Suspect]
     Active Substance: DROXIDOPA
     Indication: BLOOD PRESSURE ABNORMAL
     Dosage: SCHEDULE B
     Route: 048
     Dates: start: 201609
  5. NORTHERA [Suspect]
     Active Substance: DROXIDOPA
     Route: 048

REACTIONS (6)
  - Malaise [Unknown]
  - Fatigue [Unknown]
  - Heart rate increased [Unknown]
  - Drug titration error [Not Recovered/Not Resolved]
  - Hypertension [Unknown]
  - Feeling abnormal [Unknown]

NARRATIVE: CASE EVENT DATE: 201706
